FAERS Safety Report 10714198 (Version 1)
Quarter: 2015Q1

REPORT INFORMATION
  Report Type: Spontaneous
  Country: US (occurrence: US)
  Receive Date: 20150115
  Receipt Date: 20150115
  Transmission Date: 20150721
  Serious: Yes (Other)
  Sender: FDA-Public Use
  Company Number: US-ASTELLAS-2014US019045

PATIENT
  Sex: Female

DRUGS (1)
  1. MYRBETRIQ [Suspect]
     Active Substance: MIRABEGRON
     Indication: PRODUCT USED FOR UNKNOWN INDICATION
     Dosage: UNK UNK, UNKNOWN FREQ.
     Route: 065

REACTIONS (1)
  - Urinary retention [Unknown]
